FAERS Safety Report 9988161 (Version 2)
Quarter: 2014Q2

REPORT INFORMATION
  Report Type: Spontaneous
  Country: US (occurrence: US)
  Receive Date: 20140309
  Receipt Date: 20140409
  Transmission Date: 20141212
  Serious: No
  Sender: FDA-Public Use
  Company Number: US-TEVA-466644USA

PATIENT
  Age: 72 Year
  Sex: Female
  Weight: 69.01 kg

DRUGS (5)
  1. AZILECT [Suspect]
     Indication: PARKINSON^S DISEASE
     Dates: start: 2013
  2. AMITIZA [Concomitant]
     Indication: CONSTIPATION
  3. CARBIDOPA W/LEVODOPA [Concomitant]
     Indication: PARKINSON^S DISEASE
  4. DIOVAN [Concomitant]
     Indication: HYPERTENSION
  5. LEVOTHYROXINE [Concomitant]
     Indication: HYPOTHYROIDISM

REACTIONS (2)
  - Neck pain [Not Recovered/Not Resolved]
  - Insomnia [Not Recovered/Not Resolved]
